FAERS Safety Report 21258782 (Version 1)
Quarter: 2022Q3

REPORT INFORMATION
  Report Type: Report from Study
  Country: US (occurrence: None)
  Receive Date: 20220826
  Receipt Date: 20220826
  Transmission Date: 20221026
  Serious: Yes (Other)
  Sender: FDA-Public Use
  Company Number: US-NESTLEHEALTHSCIENCE-2022000075

PATIENT
  Age: 86 Year
  Sex: Female
  Weight: 46.27 kg

DRUGS (13)
  1. ZENPEP [Suspect]
     Active Substance: PANCRELIPASE AMYLASE\PANCRELIPASE LIPASE\PANCRELIPASE PROTEASE
     Indication: Pancreatic failure
     Dosage: 2 CAPSULES WITH EVERY MEAL AND ONE WITH SNACK
     Route: 048
     Dates: start: 202011
  2. VITAMIN B COMPLEX [Suspect]
     Active Substance: CYANOCOBALAMIN\DEXPANTHENOL\NIACINAMIDE\PYRIDOXINE HYDROCHLORIDE\RIBOFLAVIN 5^-PHOSPHATE SODIUM\THIA
  3. VITAMIN B12 [Suspect]
     Active Substance: CYANOCOBALAMIN
  4. SIMVASTATIN [Suspect]
     Active Substance: SIMVASTATIN
  5. OMEPRAZOLE [Suspect]
     Active Substance: OMEPRAZOLE
  6. ATENOLOL [Suspect]
     Active Substance: ATENOLOL
  7. LEVOTHYROXINE SODIUM [Suspect]
     Active Substance: LEVOTHYROXINE SODIUM
  8. ATIVAN [Suspect]
     Active Substance: LORAZEPAM
  9. VITAMIN C [Suspect]
     Active Substance: ASCORBIC ACID
     Dosage: AS NEEDED
  10. PROBIOTICS NOS [Suspect]
     Active Substance: PROBIOTICS NOS
     Dosage: AS NEEDED
  11. ASPIRIN [Suspect]
     Active Substance: ASPIRIN
     Dosage: AS NEEDED
  12. MIRALAX [Suspect]
     Active Substance: POLYETHYLENE GLYCOL 3350
     Dosage: AS NEEDED
  13. BEANO [Suspect]
     Active Substance: ASPERGILLUS NIGER .ALPHA.-GALACTOSIDASE
     Dosage: AS NEEDED

REACTIONS (10)
  - Barrett^s oesophagus [Unknown]
  - Muscle spasms [Unknown]
  - COVID-19 [Unknown]
  - Faeces hard [Unknown]
  - Iron deficiency anaemia [Unknown]
  - Constipation [Unknown]
  - Diarrhoea [Unknown]
  - Weight decreased [Unknown]
  - Flatulence [Unknown]
  - Fall [Unknown]

NARRATIVE: CASE EVENT DATE: 20220101
